FAERS Safety Report 4586682-2 (Version None)
Quarter: 2005Q1

REPORT INFORMATION
  Report Type: 
  Country: None (occurrence: None)
  Receive Date: 20050218
  Receipt Date: 20041223
  Transmission Date: 20050727
  Serious: Yes (Other)
  Sender: FDA-Public Use
  Company Number: US-BRISTOL-MYERS SQUIBB COMPANY-12806493

PATIENT
  Age: 45 Year
  Sex: Male

DRUGS (3)
  1. TAXOL [Suspect]
     Indication: OESOPHAGEAL CARCINOMA
  2. CARBOPLATIN [Suspect]
     Indication: OESOPHAGEAL CARCINOMA
  3. CLOZAPINE [Suspect]
     Indication: SCHIZOAFFECTIVE DISORDER
     Dosage: DOSE:  50 - 300 MG
     Route: 048
     Dates: start: 20020301, end: 20041201

REACTIONS (1)
  - AGRANULOCYTOSIS [None]
